FAERS Safety Report 9172474 (Version 3)
Quarter: 2013Q2

REPORT INFORMATION
  Report Type: Report from Study
  Country: CA (occurrence: CA)
  Receive Date: 20130319
  Receipt Date: 20130516
  Transmission Date: 20140414
  Serious: Yes (Hospitalization, Other)
  Sender: FDA-Public Use
  Company Number: CA-ABBOTT-12P-028-0934707-00

PATIENT
  Sex: Male
  Weight: 88.9 kg

DRUGS (4)
  1. HUMIRA [Suspect]
     Indication: CROHN^S DISEASE
     Route: 058
     Dates: start: 20091204, end: 2013
  2. HUMIRA [Suspect]
     Route: 058
     Dates: start: 2013
  3. PREDNISONE [Concomitant]
     Indication: PRODUCT USED FOR UNKNOWN INDICATION
     Dosage: TAPERING SCHEDULE(NO OTHER DETAILS PROVIDED)
  4. METHOTREXATE [Concomitant]
     Indication: PRODUCT USED FOR UNKNOWN INDICATION

REACTIONS (6)
  - Ileal stenosis [Recovered/Resolved]
  - Procedural pain [Unknown]
  - Ileal ulcer [Not Recovered/Not Resolved]
  - Scar [Unknown]
  - Abdominal pain lower [Not Recovered/Not Resolved]
  - Drug ineffective [Unknown]
